FAERS Safety Report 4553826-8 (Version None)
Quarter: 2005Q1

REPORT INFORMATION
  Report Type: 
  Country: None (occurrence: None)
  Receive Date: 20050114
  Receipt Date: 20050114
  Transmission Date: 20050727
  Serious: Yes (Disabling)
  Sender: FDA-Public Use
  Company Number: None

PATIENT
  Age: 63 Year
  Sex: Female
  Weight: 85.2762 kg

DRUGS (6)
  1. CELEBREX [Suspect]
     Indication: ARTHRALGIA
     Dosage: 100 MG ONCE DAILY
     Dates: start: 20020918, end: 20030219
  2. VIOXX [Suspect]
     Indication: ARTHRALGIA
     Dosage: 12.5 MG ONCE DAILY
     Dates: start: 20010516, end: 20020917
  3. SYNTHROID [Concomitant]
  4. MULTIVITAMIN [Concomitant]
  5. GLUCOSAMINE [Concomitant]
  6. TUSSIONEX [Concomitant]

REACTIONS (5)
  - CEREBROVASCULAR ACCIDENT [None]
  - DIZZINESS [None]
  - READING DISORDER [None]
  - VISUAL ACUITY REDUCED [None]
  - VISUAL FIELD DEFECT [None]
